FAERS Safety Report 25618195 (Version 1)
Quarter: 2025Q3

REPORT INFORMATION
  Report Type: Spontaneous
  Country: EU (occurrence: EU)
  Receive Date: 20250729
  Receipt Date: 20250729
  Transmission Date: 20251021
  Serious: Yes (Other)
  Sender: VERTEX
  Company Number: None

PATIENT
  Age: 10 Year
  Sex: Male
  Weight: 35 kg

DRUGS (4)
  1. ELEXACAFTOR\IVACAFTOR\TEZACAFTOR [Suspect]
     Active Substance: ELEXACAFTOR\IVACAFTOR\TEZACAFTOR
     Indication: Cystic fibrosis
     Dosage: TWO TABLETS (75 MG IVACAFTOR/ 100 MG ELEXACAFTOR/ 50 MG TEZACAFTOR) ONCE DAILY
     Route: 048
     Dates: start: 20230926, end: 20250417
  2. KALYDECO [Suspect]
     Active Substance: IVACAFTOR
     Indication: Cystic fibrosis
     Dosage: ONCE DAILY
     Route: 048
     Dates: start: 20230926, end: 20250417
  3. PANCRELIPASE [Concomitant]
     Active Substance: PANCRELIPASE
  4. EBASTINE [Concomitant]
     Active Substance: EBASTINE
     Dosage: ONE DAILY
     Route: 048

REACTIONS (4)
  - Disturbance in attention [Recovered/Resolved]
  - Aggression [Recovered/Resolved]
  - Impulsive behaviour [Recovered/Resolved]
  - Behaviour disorder [Recovered/Resolved]

NARRATIVE: CASE EVENT DATE: 20250101
